FAERS Safety Report 4580600-9 (Version None)
Quarter: 2005Q1

REPORT INFORMATION
  Report Type: 
  Country: None (occurrence: None)
  Receive Date: 20050127
  Receipt Date: 20041026
  Transmission Date: 20050727
  Serious: No
  Sender: FDA-Public Use
  Company Number: USA040875887

PATIENT
  Age: 37 Year
  Sex: Male

DRUGS (1)
  1. STRATTERA [Suspect]
     Indication: ATTENTION DEFICIT/HYPERACTIVITY DISORDER
     Dosage: 80 MG DAY
     Dates: start: 20040817, end: 20040901

REACTIONS (9)
  - ABNORMAL SENSATION IN EYE [None]
  - BRUXISM [None]
  - DRY MOUTH [None]
  - FATIGUE [None]
  - FEELING ABNORMAL [None]
  - HEADACHE [None]
  - NASAL DRYNESS [None]
  - VISION BLURRED [None]
  - VISUAL ACUITY REDUCED [None]
